FAERS Safety Report 17945915 (Version 1)
Quarter: 2020Q2

REPORT INFORMATION
  Report Type: Spontaneous
  Country: CA (occurrence: CA)
  Receive Date: 20200625
  Receipt Date: 20200625
  Transmission Date: 20200714
  Serious: Yes (Other)
  Sender: FDA-Public Use
  Company Number: CA-TEVA-2020-CA-1792815

PATIENT
  Age: 35 Year
  Sex: Female

DRUGS (2)
  1. BETAMETHASONE. [Suspect]
     Active Substance: BETAMETHASONE
     Indication: MATERNAL THERAPY TO ENHANCE FOETAL LUNG MATURITY
     Route: 065
  2. LABETALOL [Suspect]
     Active Substance: LABETALOL\LABETALOL HYDROCHLORIDE
     Indication: BLOOD PRESSURE MANAGEMENT
     Route: 065

REACTIONS (6)
  - HELLP syndrome [Unknown]
  - Maternal exposure during pregnancy [Unknown]
  - Nausea [Unknown]
  - Vomiting [Unknown]
  - Pre-eclampsia [Unknown]
  - Abdominal pain [Unknown]
